FAERS Safety Report 7147516-5 (Version None)
Quarter: 2010Q4

REPORT INFORMATION
  Report Type: 
  Country: None (occurrence: None)
  Receive Date: 20101209
  Receipt Date: 20040218
  Transmission Date: 20110411
  Serious: Yes (Death, Hospitalization, Other)
  Sender: FDA-Public Use
  Company Number: US-ACTELION-A-US2003-03965

PATIENT

DRUGS (10)
  1. BOSENTAN TABLET 62.5 MG US [Suspect]
     Indication: PULMONARY ARTERIAL HYPERTENSION
     Dosage: 62.5 MG, UNK
     Route: 048
     Dates: start: 20031021, end: 20031024
  2. DIGOXIN [Concomitant]
  3. NORVASC [Concomitant]
  4. CARDIZEM [Concomitant]
  5. CALCITRANS [Concomitant]
  6. CAPTOPRIL [Concomitant]
  7. PREDNISONE [Concomitant]
  8. PROCRIT [Concomitant]
  9. PANTOPRAZOLE [Concomitant]
  10. HYTRIN [Concomitant]

REACTIONS (5)
  - DEATH [None]
  - DIARRHOEA [None]
  - NAUSEA [None]
  - RENAL DISORDER [None]
  - VOMITING [None]
